FAERS Safety Report 5928117-0 (Version None)
Quarter: 2008Q4

REPORT INFORMATION
  Report Type: 
  Country: None (occurrence: None)
  Receive Date: 20081020
  Receipt Date: 20081007
  Transmission Date: 20090506
  Serious: Yes (Other)
  Sender: FDA-Public Use
  Company Number: 2008US002579

PATIENT
  Age: 58 Year
  Sex: Male
  Weight: 113.4 kg

DRUGS (2)
  1. AMEVIVE [Suspect]
     Indication: PSORIASIS
     Dosage: 0.6 ML, WEEKLY, INTRAMUSCULAR
     Route: 030
     Dates: start: 20061017, end: 20070109
  2. TRICOR [Concomitant]

REACTIONS (2)
  - BLOOD GLUCOSE INCREASED [None]
  - DIABETES MELLITUS [None]
